FAERS Safety Report 9193802 (Version 1)
Quarter: 2013Q1

REPORT INFORMATION
  Report Type: Spontaneous
  Country: US (occurrence: None)
  Receive Date: 20130325
  Receipt Date: 20130325
  Transmission Date: 20140127
  Serious: Yes (Other)
  Sender: FDA-Public Use
  Company Number: None

PATIENT
  Sex: Male
  Weight: 74.39 kg

DRUGS (1)
  1. VIIBRYD [Suspect]
     Dates: start: 201302

REACTIONS (2)
  - Aggression [None]
  - Unevaluable event [None]
